FAERS Safety Report 7785161-9 (Version None)
Quarter: 2011Q3

REPORT INFORMATION
  Report Type: 
  Country: None (occurrence: None)
  Receive Date: 20110929
  Receipt Date: 20110921
  Transmission Date: 20111222
  Serious: No
  Sender: FDA-Public Use
  Company Number: US-BIOGENIDEC-2011BI036462

PATIENT
  Age: 63 Year
  Sex: Female

DRUGS (5)
  1. HYDROCODONE [Concomitant]
     Indication: OSTEOARTHRITIS
  2. HYDROCODONE [Concomitant]
     Indication: FIBROMYALGIA
  3. FENTANYL PAIN PATCHES [Concomitant]
     Indication: OSTEOARTHRITIS
  4. TYSABRI [Suspect]
     Indication: MULTIPLE SCLEROSIS
     Route: 042
     Dates: start: 20110614
  5. FENTANYL PAIN PATCHES [Concomitant]
     Indication: FIBROMYALGIA

REACTIONS (1)
  - ARTHRALGIA [None]
